FAERS Safety Report 17437995 (Version 1)
Quarter: 2020Q1

REPORT INFORMATION
  Report Type: Report from Study
  Country: None (occurrence: BE)
  Receive Date: 20200220
  Receipt Date: 20200220
  Transmission Date: 20200409
  Serious: Yes (Death)
  Sender: FDA-Public Use
  Company Number: BE-ABBVIE-20K-013-3281864-00

PATIENT
  Sex: Male
  Weight: 70 kg

DRUGS (10)
  1. IMBRUVICA [Suspect]
     Active Substance: IBRUTINIB
     Route: 048
     Dates: start: 201907
  2. BISOPROLOL (EMCONCOR) (NON-ABBVIE) [Concomitant]
     Indication: HYPERTENSION
  3. LERCANIDIPINE HYDROCHLORIDE (ZANIDIP) (NON-ABBVIE) [Concomitant]
     Indication: HYPERTENSION
  4. ACETYLSALICYLIC ACID (ASAFLOW) (NON-ABBVIE) [Concomitant]
     Indication: PRODUCT USED FOR UNKNOWN INDICATION
  5. ACICLOVIR (NON-ABBVIE) [Concomitant]
     Indication: PROPHYLAXIS
  6. RITUXIMAB. [Suspect]
     Active Substance: RITUXIMAB
     Indication: MANTLE CELL LYMPHOMA STAGE IV
     Route: 065
     Dates: start: 201906
  7. VENETOCLAX. [Suspect]
     Active Substance: VENETOCLAX
     Indication: MANTLE CELL LYMPHOMA STAGE IV
     Route: 048
     Dates: start: 201906
  8. SULFAMETHOXAZOL AND  TRIMETHOPRIM  (BACTRIM) (NON-ABBVIE) [Concomitant]
     Indication: INFECTION PROPHYLAXIS
  9. PANTOPRAZOL (PANTOMED) (NON-ABBVIE) [Concomitant]
     Indication: PRODUCT USED FOR UNKNOWN INDICATION
  10. IMBRUVICA [Suspect]
     Active Substance: IBRUTINIB
     Indication: MANTLE CELL LYMPHOMA STAGE IV
     Route: 048
     Dates: start: 20190402

REACTIONS (2)
  - Off label use [Unknown]
  - Disease progression [Fatal]
